FAERS Safety Report 15247216 (Version 1)
Quarter: 2018Q3

REPORT INFORMATION
  Report Type: Spontaneous
  Country: ES (occurrence: ES)
  Receive Date: 20180807
  Receipt Date: 20180807
  Transmission Date: 20181010
  Serious: Yes (Congenital Anomaly, Other)
  Sender: FDA-Public Use
  Company Number: ES-SCIEGEN PHARMACEUTICALS INC-2018SCILIT00507

PATIENT

DRUGS (1)
  1. OLMESARTAN MEDOXOMIL TABLETS 5 MG, 20 MG, 40 MG [Suspect]
     Active Substance: OLMESARTAN MEDOXOMIL
     Indication: PRODUCT USED FOR UNKNOWN INDICATION
     Dosage: UNK
     Route: 064

REACTIONS (11)
  - Anaemia [Unknown]
  - Hypotonia neonatal [Unknown]
  - Microcephaly [Unknown]
  - Hypertension [Unknown]
  - Areflexia [Unknown]
  - Pulmonary hypoplasia [Unknown]
  - Renal failure [Recovering/Resolving]
  - Foetal exposure during pregnancy [Unknown]
  - Foetal growth restriction [Unknown]
  - Pneumothorax [Unknown]
  - Premature baby [Unknown]
